FAERS Safety Report 24825026 (Version 6)
Quarter: 2025Q3

REPORT INFORMATION
  Report Type: Report from Study
  Country: US (occurrence: US)
  Receive Date: 20250109
  Receipt Date: 20250904
  Transmission Date: 20251021
  Serious: Yes (Hospitalization, Other)
  Sender: TAKEDA
  Company Number: US-TAKEDA-2024TUS104876

PATIENT
  Sex: Female
  Weight: 55.782 kg

DRUGS (24)
  1. IXAZOMIB [Suspect]
     Active Substance: IXAZOMIB
     Indication: Neoplasm
  2. IXAZOMIB [Suspect]
     Active Substance: IXAZOMIB
     Indication: Plasma cell myeloma
     Dosage: 4 MILLIGRAM, 1/WEEK
  3. IXAZOMIB [Suspect]
     Active Substance: IXAZOMIB
  4. IXAZOMIB [Suspect]
     Active Substance: IXAZOMIB
  5. ASPIRIN [Concomitant]
     Active Substance: ASPIRIN
  6. ALLOPURINOL [Concomitant]
     Active Substance: ALLOPURINOL
  7. ATORVASTATIN [Concomitant]
     Active Substance: ATORVASTATIN
  8. AMLODIPINE [Concomitant]
     Active Substance: AMLODIPINE BESYLATE
  9. CARVEDILOL [Concomitant]
     Active Substance: CARVEDILOL
  10. CLOPIDOGREL [Concomitant]
     Active Substance: CLOPIDOGREL BISULFATE
  11. FAMOTIDINE [Concomitant]
     Active Substance: FAMOTIDINE
  12. FERROUS SULFATE [Concomitant]
     Active Substance: FERROUS SULFATE
  13. FLONASE [Concomitant]
     Active Substance: FLUTICASONE PROPIONATE
  14. LASIX [Concomitant]
     Active Substance: FUROSEMIDE
  15. GLIPIZIDE [Concomitant]
     Active Substance: GLIPIZIDE
  16. HYDRALAZINE [Concomitant]
     Active Substance: HYDRALAZINE HYDROCHLORIDE
  17. ISOSORBIDE MONONITRATE [Concomitant]
     Active Substance: ISOSORBIDE MONONITRATE
  18. LOSARTAN [Concomitant]
     Active Substance: LOSARTAN
  19. SENNOSIDES [Concomitant]
     Active Substance: SENNOSIDES
  20. VITAMIN B12 [Concomitant]
     Active Substance: CYANOCOBALAMIN
  21. LIPITOR [Concomitant]
     Active Substance: ATORVASTATIN CALCIUM
     Dosage: 40 MILLIGRAM, QD
  22. APRESOLINE HYDROCHLORIDE [Concomitant]
     Active Substance: HYDRALAZINE HYDROCHLORIDE
     Dosage: 100 MILLIGRAM, QD
  23. VITAMIN A [Concomitant]
     Active Substance: VITAMIN A
     Dosage: UNK UNK, 1/WEEK
  24. IMDUR [Concomitant]
     Active Substance: ISOSORBIDE MONONITRATE
     Dosage: 30 MILLIGRAM, QD

REACTIONS (4)
  - Peripheral artery occlusion [Unknown]
  - Liver function test increased [Unknown]
  - Product dose omission issue [Unknown]
  - Product packaging quantity issue [Unknown]
